FAERS Safety Report 6184214-9 (Version None)
Quarter: 2009Q2

REPORT INFORMATION
  Report Type: 
  Country: None (occurrence: None)
  Receive Date: 20090508
  Receipt Date: 20090501
  Transmission Date: 20091009
  Serious: Yes (Hospitalization)
  Sender: FDA-Public Use
  Company Number: US-ELI_LILLY_AND_COMPANY-US200712001031

PATIENT
  Sex: Female

DRUGS (3)
  1. EVISTA [Suspect]
     Indication: OSTEOPOROSIS
     Dosage: 60 MG, UNKNOWN
     Route: 048
     Dates: start: 20050901, end: 20071205
  2. EVISTA [Suspect]
     Dosage: 60 MG, 3/W
     Route: 065
     Dates: start: 20071205
  3. EVISTA [Suspect]
     Dosage: UNK, UNKNOWN
     Route: 065

REACTIONS (11)
  - BOWEL MOVEMENT IRREGULARITY [None]
  - DEPRESSED MOOD [None]
  - DIVERTICULITIS [None]
  - FATIGUE [None]
  - HOT FLUSH [None]
  - IRRITABILITY [None]
  - MENSTRUATION IRREGULAR [None]
  - MIGRAINE [None]
  - MUSCLE SPASMS [None]
  - PAIN [None]
  - WEIGHT INCREASED [None]
